FAERS Safety Report 10944959 (Version 2)
Quarter: 2015Q2

REPORT INFORMATION
  Report Type: Spontaneous
  Country: US (occurrence: None)
  Receive Date: 20150319
  Receipt Date: 20150407
  Transmission Date: 20150821
  Serious: Yes (Hospitalization, Other)
  Sender: FDA-Public Use
  Company Number: 201503049

PATIENT
  Age: 72 Year
  Sex: Male
  Weight: 67.13 kg

DRUGS (5)
  1. TESTIM [Suspect]
     Active Substance: TESTOSTERONE
     Indication: BLOOD TESTOSTERONE DECREASED
     Route: 062
     Dates: start: 201110, end: 201110
  2. TESTIM [Suspect]
     Active Substance: TESTOSTERONE
     Indication: ERECTILE DYSFUNCTION
     Route: 062
     Dates: start: 201110, end: 201110
  3. ANDROGEL [Suspect]
     Active Substance: TESTOSTERONE
     Indication: BLOOD TESTOSTERONE DECREASED
     Route: 061
     Dates: start: 200810, end: 201411
  4. ANDROGEL [Suspect]
     Active Substance: TESTOSTERONE
     Indication: HYPOGONADISM
     Route: 061
     Dates: start: 200810, end: 201411
  5. TESTIM [Suspect]
     Active Substance: TESTOSTERONE
     Indication: HYPOGONADISM
     Route: 062
     Dates: start: 201110, end: 201110

REACTIONS (8)
  - Myocardial infarction [None]
  - Angina pectoris [None]
  - Coronary artery disease [None]
  - Bladder cancer [None]
  - Emotional distress [None]
  - Acute myocardial infarction [None]
  - Ischaemic cardiomyopathy [None]
  - Economic problem [None]

NARRATIVE: CASE EVENT DATE: 20130401
